FAERS Safety Report 6429747-2 (Version None)
Quarter: 2009Q4

REPORT INFORMATION
  Report Type: 
  Country: None (occurrence: None)
  Receive Date: 20091106
  Receipt Date: 20091028
  Transmission Date: 20100525
  Serious: Yes (Other)
  Sender: FDA-Public Use
  Company Number: CH-WYE-G04558309

PATIENT
  Age: 45 Year
  Sex: Male

DRUGS (12)
  1. EFFEXOR XR [Interacting]
     Indication: DEPRESSIVE SYMPTOM
     Route: 048
     Dates: start: 20090611, end: 20090624
  2. EFFEXOR XR [Interacting]
     Route: 048
     Dates: start: 20090625, end: 20090630
  3. EFFEXOR XR [Interacting]
     Route: 048
     Dates: start: 20090701, end: 20090705
  4. BECOZYM [Concomitant]
     Indication: HYPOVITAMINOSIS
     Route: 048
     Dates: start: 20090601, end: 20090629
  5. BENERVA [Concomitant]
     Indication: HYPOVITAMINOSIS
     Route: 048
     Dates: start: 20090601, end: 20090629
  6. CATAPRESAN [Interacting]
     Indication: HYPERTENSION
     Route: 048
     Dates: start: 20090611, end: 20090624
  7. CATAPRESAN [Interacting]
     Route: 048
     Dates: start: 20090625, end: 20090626
  8. CATAPRESAN [Interacting]
     Route: 048
     Dates: start: 20090627, end: 20090628
  9. CATAPRESAN [Interacting]
     Route: 048
     Dates: start: 20090629, end: 20090630
  10. LORAZEPAM [Suspect]
     Route: 048
     Dates: start: 20090611, end: 20090614
  11. LORAZEPAM [Suspect]
     Route: 048
     Dates: start: 20090702, end: 20090705
  12. LORAZEPAM [Suspect]
     Route: 048
     Dates: start: 20090706, end: 20090708

REACTIONS (6)
  - DRUG INTERACTION [None]
  - DRUG WITHDRAWAL SYNDROME [None]
  - HYPERAESTHESIA [None]
  - HYPERSENSITIVITY [None]
  - RASH PRURITIC [None]
  - TINNITUS [None]
